FAERS Safety Report 5246477-3 (Version None)
Quarter: 2007Q1

REPORT INFORMATION
  Report Type: 
  Country: None (occurrence: None)
  Receive Date: 20070216
  Receipt Date: 20070202
  Transmission Date: 20070707
  Serious: Yes (Hospitalization)
  Sender: FDA-Public Use
  Company Number: 2007SP000389

PATIENT
  Age: 60 Year
  Sex: Male
  Weight: 93.2 kg

DRUGS (11)
  1. XOPENEX [Suspect]
     Indication: CHRONIC OBSTRUCTIVE PULMONARY DISEASE
     Dosage: ;PRN; INHALATION
     Route: 055
  2. HERBAL PREPARATION [Concomitant]
  3. TAMSULOSIN HCL [Concomitant]
  4. HYDROCHLORIDE [Concomitant]
  5. MUCINEX [Concomitant]
  6. TYLENOL EXTRA-STRENGTH [Concomitant]
  7. ALBUTEROL [Concomitant]
  8. VITAMIN B-12 [Concomitant]
  9. SAW PALMETTO [Concomitant]
  10. VIAGRA [Concomitant]
  11. UROXATRAL [Concomitant]

REACTIONS (1)
  - APPENDICITIS [None]
